FAERS Safety Report 7946024-9 (Version None)
Quarter: 2011Q4

REPORT INFORMATION
  Report Type: 
  Country: None (occurrence: None)
  Receive Date: 20111129
  Receipt Date: 20111122
  Transmission Date: 20120403
  Serious: Yes (Hospitalization)
  Sender: FDA-Public Use
  Company Number: US-GLAXOSMITHKLINE-A0843562A

PATIENT
  Age: 58 Year
  Sex: Male
  Weight: 121.8 kg

DRUGS (6)
  1. BYETTA [Concomitant]
  2. DILTIAZEM HCL [Concomitant]
  3. AVANDIA [Suspect]
     Indication: TYPE 2 DIABETES MELLITUS
     Dosage: 8MG PER DAY
     Route: 048
     Dates: start: 20001201
  4. CARTIA XT [Concomitant]
  5. GLUCOTROL [Concomitant]
  6. ZOCOR [Concomitant]

REACTIONS (2)
  - ISCHAEMIC STROKE [None]
  - ATRIAL FIBRILLATION [None]
